FAERS Safety Report 10008016 (Version 1)
Quarter: 2014Q1

REPORT INFORMATION
  Report Type: Spontaneous
  Country: US (occurrence: US)
  Receive Date: 20140313
  Receipt Date: 20140313
  Transmission Date: 20141002
  Serious: Yes (Hospitalization)
  Sender: FDA-Public Use
  Company Number: US-JNJFOC-20140304642

PATIENT
  Age: 68 Year
  Sex: Male

DRUGS (7)
  1. REMICADE [Suspect]
     Indication: COLITIS ULCERATIVE
     Route: 042
     Dates: start: 20140228
  2. REMICADE [Suspect]
     Indication: COLITIS ULCERATIVE
     Route: 042
     Dates: start: 201402
  3. ASACOL [Suspect]
     Indication: COLITIS ULCERATIVE
     Route: 065
     Dates: start: 201402, end: 201403
  4. SOLU-MEDROL [Concomitant]
     Indication: COLITIS ULCERATIVE
     Route: 065
     Dates: start: 201402
  5. CIPRO [Concomitant]
     Indication: PROPHYLAXIS
     Route: 065
     Dates: start: 201402, end: 201402
  6. LEVAQUIN [Concomitant]
     Indication: PROPHYLAXIS
     Route: 065
     Dates: start: 2014, end: 2014
  7. LOMOTIL [Concomitant]
     Indication: COLITIS ULCERATIVE
     Route: 065

REACTIONS (5)
  - Thrombosis [Unknown]
  - Pulmonary thrombosis [Unknown]
  - Mental status changes [Not Recovered/Not Resolved]
  - Amnesia [Not Recovered/Not Resolved]
  - Encephalitis autoimmune [Not Recovered/Not Resolved]
